FAERS Safety Report 17460201 (Version 1)
Quarter: 2020Q1

REPORT INFORMATION
  Report Type: Spontaneous
  Country: US (occurrence: US)
  Receive Date: 20200212
  Receipt Date: 20200212
  Transmission Date: 20200409
  Serious: Yes (Hospitalization)
  Sender: FDA-Public Use
  Company Number: None

PATIENT
  Age: 58 Year
  Sex: Female
  Weight: 49.4 kg

DRUGS (1)
  1. CISPLATIN. [Suspect]
     Active Substance: CISPLATIN
     Dates: end: 20200129

REACTIONS (6)
  - Oropharyngeal candidiasis [None]
  - Pharyngitis bacterial [None]
  - Mucosal inflammation [None]
  - Viral pharyngitis [None]
  - Radiation oesophagitis [None]
  - Dysphagia [None]

NARRATIVE: CASE EVENT DATE: 20200202
